FAERS Safety Report 6149811-5 (Version None)
Quarter: 2009Q2

REPORT INFORMATION
  Report Type: 
  Country: None (occurrence: None)
  Receive Date: 20090402
  Receipt Date: 20081017
  Transmission Date: 20091009
  Serious: Yes (Other)
  Sender: FDA-Public Use
  Company Number: 2008SU0256

PATIENT
  Age: 78 Year
  Sex: Female

DRUGS (4)
  1. SULAR [Suspect]
     Indication: HYPERTENSION
     Dosage: 8.5 MG, QD
     Dates: start: 20080601
  2. BUMEX [Concomitant]
  3. CALCITRIOL [Concomitant]
  4. IRON PILLS [Concomitant]

REACTIONS (1)
  - DRUG INEFFECTIVE [None]
